FAERS Safety Report 19108733 (Version 5)
Quarter: 2021Q3

REPORT INFORMATION
  Report Type: Spontaneous
  Country: US (occurrence: US)
  Receive Date: 20210408
  Receipt Date: 20210810
  Transmission Date: 20211014
  Serious: Yes (Other)
  Sender: FDA-Public Use
  Company Number: US-ORGANON-O2104USA000476

PATIENT
  Age: 38 Year
  Sex: Female
  Weight: 117.91 kg

DRUGS (1)
  1. NEXPLANON [Suspect]
     Active Substance: ETONOGESTREL
     Dosage: 68 MILLIGRAM; LEFT UPPER ARM (NON DOMINANT ARM); OVER THE TRICEPS MUSCLE, APPROXIMATELY 5?6 CM  FROM
     Route: 059
     Dates: start: 20180406, end: 2021

REACTIONS (5)
  - Device issue [Recovered/Resolved]
  - Device dislocation [Recovered/Resolved]
  - Impaired healing [Unknown]
  - Incorrect product administration duration [Unknown]
  - Complication associated with device [Recovered/Resolved]

NARRATIVE: CASE EVENT DATE: 2021
